FAERS Safety Report 6563990-7 (Version None)
Quarter: 2010Q1

REPORT INFORMATION
  Report Type: 
  Country: None (occurrence: None)
  Receive Date: 20100131
  Receipt Date: 20100121
  Transmission Date: 20100710
  Serious: Yes (Hospitalization)
  Sender: FDA-Public Use
  Company Number: JP-JNJFOC-20100103192

PATIENT
  Sex: Female
  Weight: 47 kg

DRUGS (7)
  1. REMICADE [Suspect]
     Indication: RHEUMATOID ARTHRITIS
     Dosage: 1 INFUSION ON AN UNSPECIFIED DATE
     Route: 042
  2. REMICADE [Suspect]
     Dosage: 2ND INFUSION
     Route: 042
  3. PREDONINE [Concomitant]
     Indication: RHEUMATOID ARTHRITIS
     Route: 048
  4. RHEUMATREX [Concomitant]
     Indication: RHEUMATOID ARTHRITIS
     Route: 048
  5. LOXONIN [Concomitant]
     Indication: RHEUMATOID ARTHRITIS
     Route: 048
  6. MUCOSTA [Concomitant]
     Indication: GASTRITIS
     Route: 048
  7. FOLIAMIN [Concomitant]
     Indication: FOLATE DEFICIENCY
     Route: 048

REACTIONS (3)
  - INFUSION RELATED REACTION [None]
  - OXYGEN SATURATION DECREASED [None]
  - URTICARIA [None]
